FAERS Safety Report 13863340 (Version 2)
Quarter: 2017Q3

REPORT INFORMATION
  Report Type: Spontaneous
  Country: US (occurrence: US)
  Receive Date: 20170814
  Receipt Date: 20170907
  Transmission Date: 20171127
  Serious: Yes (Hospitalization)
  Sender: FDA-Public Use
  Company Number: US-009507513-1708USA004749

PATIENT
  Age: 22 Year
  Sex: Male

DRUGS (6)
  1. PALIPERIDONE. [Concomitant]
     Active Substance: PALIPERIDONE
  2. PREVACID [Concomitant]
     Active Substance: LANSOPRAZOLE
  3. SERTRALINE HYDROCHLORIDE. [Concomitant]
     Active Substance: SERTRALINE HYDROCHLORIDE
  4. RISPERIDONE. [Concomitant]
     Active Substance: RISPERIDONE
  5. ZEPATIER [Suspect]
     Active Substance: ELBASVIR\GRAZOPREVIR
     Indication: CHRONIC HEPATITIS
     Dosage: UNK, DAILY
     Route: 048
     Dates: start: 20170629
  6. SEROQUEL [Concomitant]
     Active Substance: QUETIAPINE FUMARATE

REACTIONS (3)
  - Syncope [Unknown]
  - Blood glucose decreased [Unknown]
  - Drug dose omission [Unknown]

NARRATIVE: CASE EVENT DATE: 20170724
